FAERS Safety Report 8213255-2 (Version None)
Quarter: 2012Q1

REPORT INFORMATION
  Report Type: 
  Country: None (occurrence: None)
  Receive Date: 20120315
  Receipt Date: 20120309
  Transmission Date: 20120608
  Serious: Yes (Hospitalization, Disabling, Other)
  Sender: FDA-Public Use
  Company Number: BR-ABBOTT-12P-020-0913630-00

PATIENT
  Weight: 88.4 kg

DRUGS (16)
  1. ALPRAZOLAM [Concomitant]
     Indication: ANXIOLYTIC THERAPY
     Route: 048
  2. DEPAKENE [Concomitant]
     Route: 048
  3. CLONAZEPAM [Concomitant]
     Indication: PANIC DISORDER
  4. OMEPRAZOLE [Concomitant]
     Indication: PROPHYLAXIS
     Dosage: 2 PER DAY
     Route: 048
     Dates: start: 20100101
  5. HUMIRA [Suspect]
     Indication: ANKYLOSING SPONDYLITIS
     Route: 058
     Dates: start: 20110103, end: 20110701
  6. HUMIRA [Suspect]
     Route: 058
     Dates: start: 20110101
  7. DIAZEPAM [Suspect]
     Indication: SLEEP DISORDER THERAPY
     Dosage: 2 PER DAY
     Route: 048
  8. DEPAKENE [Concomitant]
     Indication: BIPOLAR DISORDER
     Dosage: 2 PER DAY
     Route: 048
  9. NIMESULIDE [Concomitant]
     Indication: ANKYLOSING SPONDYLITIS
     Route: 048
     Dates: start: 20100101
  10. TRAMADOL HYDROCHLORIDE [Concomitant]
     Indication: PAIN
     Route: 048
  11. ARFLEX [Concomitant]
     Indication: ANKYLOSING SPONDYLITIS
     Dosage: 1 CAPSULE EVERY OTHER DAY
     Route: 048
     Dates: end: 20120101
  12. DONAREN [Concomitant]
     Indication: DEPRESSION
     Dosage: 2 PER DAY AT NIGHT
     Route: 048
  13. ALPRAZOLAM [Concomitant]
     Indication: SLEEP DISORDER THERAPY
  14. DONAREN [Concomitant]
     Indication: INSOMNIA
     Dosage: 2 PER DAY AT NIGHT
     Route: 048
  15. OMEPRAZOLE [Concomitant]
     Indication: GASTRIC DISORDER
  16. PROGESTERONE [Concomitant]
     Indication: PRODUCT USED FOR UNKNOWN INDICATION
     Dosage: IUD
     Dates: start: 20080101

REACTIONS (21)
  - HYPERTENSION [None]
  - FALL [None]
  - MEMORY IMPAIRMENT [None]
  - GAIT DISTURBANCE [None]
  - INFLUENZA [None]
  - WEIGHT INCREASED [None]
  - ABASIA [None]
  - MUSCLE STRAIN [None]
  - LIGAMENT SPRAIN [None]
  - HEADACHE [None]
  - PLEURAL EFFUSION [None]
  - TREMOR [None]
  - DEPRESSION [None]
  - BLOOD CHOLESTEROL INCREASED [None]
  - CHOKING [None]
  - URINARY TRACT INFECTION [None]
  - ACNE [None]
  - RASH MACULAR [None]
  - ASPIRATION BRONCHIAL [None]
  - CONFUSIONAL STATE [None]
  - SOMNOLENCE [None]
